FAERS Safety Report 8563293-5 (Version None)
Quarter: 2012Q3

REPORT INFORMATION
  Report Type: 
  Country: None (occurrence: None)
  Receive Date: 20120802
  Receipt Date: 20120727
  Transmission Date: 20120928
  Serious: Yes (Hospitalization)
  Sender: FDA-Public Use
  Company Number: US-AMGEN-USASP2012047187

PATIENT
  Age: 72 Year
  Sex: Female

DRUGS (1)
  1. ENBREL [Suspect]
     Indication: RHEUMATOID ARTHRITIS
     Dosage: 50 MG, QWK
     Dates: start: 19990101

REACTIONS (7)
  - PNEUMONIA [None]
  - FALL [None]
  - INJECTION SITE PAIN [None]
  - CONTUSION [None]
  - FOOT DEFORMITY [None]
  - RHEUMATOID ARTHRITIS [None]
  - VENOUS THROMBOSIS [None]
